FAERS Safety Report 4336133-8 (Version None)
Quarter: 2004Q2

REPORT INFORMATION
  Report Type: 
  Country: None (occurrence: None)
  Receive Date: 20040407
  Receipt Date: 20040322
  Transmission Date: 20050107
  Serious: No
  Sender: FDA-Public Use
  Company Number: A01200400928

PATIENT
  Age: 53 Year
  Sex: Female

DRUGS (3)
  1. PLAQUENIL [Suspect]
     Dosage: 200 MG, ORAL
     Route: 048
     Dates: start: 20031127, end: 20031205
  2. METHOTREXATE [Suspect]
     Indication: RHEUMATOID ARTHRITIS
  3. CYCLOSPORINE OR PLACEBO (CODE NOT BROKEN) [Suspect]
     Indication: RHEUMATOID ARTHRITIS
     Dates: start: 20020731

REACTIONS (3)
  - ENTHESOPATHY [None]
  - MYALGIA [None]
  - MYOSITIS [None]
